FAERS Safety Report 7669806-X (Version None)
Quarter: 2011Q3

REPORT INFORMATION
  Report Type: 
  Country: None (occurrence: None)
  Receive Date: 20110808
  Receipt Date: 20110804
  Transmission Date: 20111222
  Serious: Yes (Other)
  Sender: FDA-Public Use
  Company Number: IE-AMGEN-IRLSP2011038796

PATIENT
  Age: 60 Year
  Sex: Female
  Weight: 70 kg

DRUGS (2)
  1. NPLATE [Suspect]
     Indication: IDIOPATHIC THROMBOCYTOPENIC PURPURA
     Dosage: 3 A?G/KG, QWK
     Dates: start: 20110608
  2. IMMUNE GLOBULIN (HUMAN) [Concomitant]
     Dosage: UNK
     Dates: start: 20110727

REACTIONS (2)
  - PLATELET COUNT ABNORMAL [None]
  - HAEMORRHAGE [None]
